FAERS Safety Report 11123869 (Version 1)
Quarter: 2015Q2

REPORT INFORMATION
  Report Type: Spontaneous
  Country: FR (occurrence: FR)
  Receive Date: 20150520
  Receipt Date: 20150520
  Transmission Date: 20150821
  Serious: Yes (Hospitalization)
  Sender: FDA-Public Use
  Company Number: FR-ROCHE-1579258

PATIENT
  Age: 68 Year
  Sex: Male

DRUGS (6)
  1. NEORAL [Suspect]
     Active Substance: CYCLOSPORINE
     Indication: RENAL TRANSPLANT
     Dosage: ONGOING TREATMENT
     Route: 048
  2. CELLCEPT [Suspect]
     Active Substance: MYCOPHENOLATE MOFETIL\MYCOPHENOLATE MOFETIL HYDROCHLORIDE
     Indication: RENAL TRANSPLANT
     Route: 048
  3. ALLOPURINOL. [Concomitant]
     Active Substance: ALLOPURINOL
  4. ESIDREX [Concomitant]
     Active Substance: HYDROCHLOROTHIAZIDE
  5. DETENSIEL [Concomitant]
     Active Substance: BISOPROLOL FUMARATE
  6. TAREG [Concomitant]
     Active Substance: VALSARTAN

REACTIONS (3)
  - Agranulocytosis [Recovered/Resolved]
  - Pneumonia [Recovering/Resolving]
  - Anaemia [Recovered/Resolved]

NARRATIVE: CASE EVENT DATE: 20150126
